FAERS Safety Report 5323019-5 (Version None)
Quarter: 2007Q2

REPORT INFORMATION
  Report Type: 
  Country: None (occurrence: None)
  Receive Date: 20070220
  Receipt Date: 20061101
  Transmission Date: 20071010
  Serious: No
  Sender: FDA-Public Use
  Company Number: WAES 0611USA01086

PATIENT
  Age: 53 Year
  Sex: Female

DRUGS (5)
  1. JANUVIA [Suspect]
     Indication: BLOOD GLUCOSE INCREASED
     Dosage: 100 MG/DAILY/PO
     Route: 048
     Dates: start: 20061101
  2. DIOVAN [Concomitant]
  3. PRILOSEC [Concomitant]
  4. TENORMIN [Concomitant]
  5. XANAX [Concomitant]

REACTIONS (2)
  - FEELING HOT [None]
  - HEADACHE [None]
